FAERS Safety Report 8432064-2 (Version None)
Quarter: 2012Q2

REPORT INFORMATION
  Report Type: 
  Country: None (occurrence: None)
  Receive Date: 20120606
  Receipt Date: 20120523
  Transmission Date: 20120825
  Serious: Yes (Life-Threatening, Other)
  Sender: FDA-Public Use
  Company Number: 2012P1004759

PATIENT
  Age: 75 Year
  Sex: Male

DRUGS (14)
  1. MOMETASONE FUROATE [Concomitant]
  2. CLINDAMYCIN [Concomitant]
  3. COPPER [Concomitant]
  4. CLONAZEPAM [Concomitant]
  5. ERGOCALCIFEROL [Concomitant]
  6. MELOXICAM [Concomitant]
  7. WARFARIN SODIUM [Suspect]
     Indication: THROMBOSIS PROPHYLAXIS
  8. ASCORBIC ACID [Concomitant]
  9. BETACAROTENE [Concomitant]
  10. AMLODIPINE BESYLATE [Concomitant]
  11. ATORVASTATIN CALCIUM [Concomitant]
  12. FRAGMIN [Suspect]
     Indication: THROMBOSIS PROPHYLAXIS
     Dosage: 5,000 IU; QD; SC
     Route: 058
     Dates: start: 20120111, end: 20120114
  13. PERINDOPRIL ERBUMINE [Concomitant]
  14. RIBOFLAVIN [Concomitant]

REACTIONS (1)
  - PULMONARY EMBOLISM [None]
